FAERS Safety Report 6055270-3 (Version None)
Quarter: 2009Q1

REPORT INFORMATION
  Report Type: 
  Country: None (occurrence: None)
  Receive Date: 20090122
  Receipt Date: 20090107
  Transmission Date: 20090719
  Serious: Yes (Other)
  Sender: FDA-Public Use
  Company Number: DSA_27649_2006

PATIENT
  Sex: Female
  Weight: 72.5755 kg

DRUGS (6)
  1. ATIVAN [Suspect]
     Indication: ANXIETY
     Dosage: (DF ORAL)
     Route: 048
     Dates: end: 20060101
  2. ATIVAN [Suspect]
     Indication: CONVULSION
     Dosage: (DF ORAL)
     Route: 048
     Dates: end: 20060101
  3. ATIVAN [Suspect]
     Indication: MUSCLE RELAXANT THERAPY
     Dosage: (DF ORAL)
     Route: 048
     Dates: end: 20060101
  4. ATIVAN [Suspect]
     Indication: PANIC DISORDER
     Dosage: (DF ORAL)
     Route: 048
     Dates: end: 20060101
  5. ATIVAN [Suspect]
     Indication: ANXIETY
     Dosage: (DF ORAL)
     Route: 048
     Dates: start: 19860101, end: 20060101
  6. KLONOPIN [Concomitant]

REACTIONS (31)
  - ANORECTAL DISORDER [None]
  - BLADDER DISORDER [None]
  - BLOOD POTASSIUM ABNORMAL [None]
  - BLOOD SODIUM DECREASED [None]
  - BREAST PAIN [None]
  - BREAST SWELLING [None]
  - CONSTIPATION [None]
  - DEPRESSION [None]
  - DIVERTICULITIS [None]
  - DRUG INEFFECTIVE [None]
  - DYSPEPSIA [None]
  - ELECTROENCEPHALOGRAM ABNORMAL [None]
  - FATIGUE [None]
  - FLUID RETENTION [None]
  - GAIT DISTURBANCE [None]
  - GASTROINTESTINAL MOTILITY DISORDER [None]
  - HYPOACUSIS [None]
  - INFLAMMATION [None]
  - LOCALISED OEDEMA [None]
  - LYMPHADENOPATHY [None]
  - MUSCLE RIGIDITY [None]
  - MYALGIA [None]
  - NEURALGIA [None]
  - OEDEMA [None]
  - PAIN IN EXTREMITY [None]
  - PARALYSIS [None]
  - POLLAKIURIA [None]
  - RENAL DISORDER [None]
  - SEDATION [None]
  - THERAPEUTIC RESPONSE UNEXPECTED WITH DRUG SUBSTITUTION [None]
  - TINNITUS [None]
